FAERS Safety Report 24793146 (Version 1)
Quarter: 2024Q4

REPORT INFORMATION
  Report Type: Spontaneous
  Country: IR (occurrence: IR)
  Receive Date: 20241231
  Receipt Date: 20241231
  Transmission Date: 20250115
  Serious: Yes (Hospitalization, Other)
  Sender: GLAND PHARMA LTD
  Company Number: IR-GLANDPHARMA-IR-2024GLNLIT01321

PATIENT
  Age: 17 Year
  Sex: Male

DRUGS (9)
  1. VORICONAZOLE [Suspect]
     Active Substance: VORICONAZOLE
     Indication: Product used for unknown indication
     Route: 065
  2. SIROLIMUS [Suspect]
     Active Substance: SIROLIMUS
     Indication: Prophylaxis against graft versus host disease
     Route: 048
  3. CYCLOSPORINE [Concomitant]
     Active Substance: CYCLOSPORINE
     Indication: Prophylaxis against graft versus host disease
     Route: 042
  4. HYDROCORTISONE [Concomitant]
     Active Substance: HYDROCORTISONE
     Indication: Anaphylactic reaction
     Route: 042
  5. DIPHENHYDRAMINE [Concomitant]
     Active Substance: DIPHENHYDRAMINE
     Indication: Anaphylactic reaction
     Route: 065
  6. CHLORPHENIRAMINE MALEATE [Concomitant]
     Active Substance: CHLORPHENIRAMINE MALEATE
     Indication: Anaphylactic reaction
     Route: 065
  7. OXYGEN [Concomitant]
     Active Substance: OXYGEN
     Indication: Anaphylactic reaction
     Route: 065
  8. MYCOPHENOLATE MOFETIL [Concomitant]
     Active Substance: MYCOPHENOLATE MOFETIL
     Route: 048
  9. TACROLIMUS [Concomitant]
     Active Substance: TACROLIMUS
     Indication: Prophylaxis against graft versus host disease
     Route: 051

REACTIONS (2)
  - Hepatotoxicity [Recovered/Resolved]
  - Drug interaction [Recovered/Resolved]
